FAERS Safety Report 25646946 (Version 1)
Quarter: 2025Q3

REPORT INFORMATION
  Report Type: Spontaneous
  Country: CN (occurrence: CN)
  Receive Date: 20250805
  Receipt Date: 20250805
  Transmission Date: 20251020
  Serious: Yes (Other)
  Sender: JIANGSU HENGRUI
  Company Number: CN-JIANGSU HENGRUI PHARMACEUTICALS CO., LTD.-H2025226199

PATIENT
  Age: 54 Year
  Weight: 50 kg

DRUGS (3)
  1. OXALIPLATIN FOR INJECTION [Suspect]
     Active Substance: OXALIPLATIN
     Indication: Gastric cancer
  2. GIMERACIL\OTERACIL\TEGAFUR [Suspect]
     Active Substance: GIMERACIL\OTERACIL POTASSIUM\TEGAFUR
     Indication: Gastric cancer
  3. DEXTROSE [Concomitant]
     Active Substance: DEXTROSE MONOHYDRATE
     Indication: Vehicle solution use

REACTIONS (2)
  - Nausea [Recovering/Resolving]
  - Electrolyte imbalance [Recovering/Resolving]
